FAERS Safety Report 8220770-4 (Version None)
Quarter: 2012Q1

REPORT INFORMATION
  Report Type: 
  Country: None (occurrence: None)
  Receive Date: 20120320
  Receipt Date: 20120307
  Transmission Date: 20120608
  Serious: Yes (Death, Hospitalization)
  Sender: FDA-Public Use
  Company Number: 2011SP000716

PATIENT
  Age: 77 Year
  Sex: Female

DRUGS (10)
  1. SLOW-K [Concomitant]
     Indication: HYPOKALAEMIA
     Route: 048
  2. ALDACTONE [Concomitant]
     Indication: CARDIAC FAILURE
     Route: 048
  3. FAMOTIDINE [Concomitant]
     Indication: GASTRIC ULCER
     Route: 048
  4. ALVESCO [Suspect]
     Indication: ASTHMA
     Route: 055
     Dates: start: 20090319, end: 20100225
  5. AMLODIPINE [Concomitant]
     Indication: HYPERTENSION
     Route: 048
  6. CLARITHROMYCIN [Concomitant]
     Indication: ASTHMA
     Route: 048
  7. ASPIRIN [Concomitant]
     Indication: PRODUCT USED FOR UNKNOWN INDICATION
     Route: 048
  8. DIART [Concomitant]
     Indication: CARDIAC FAILURE
     Route: 048
  9. PURSENNID                          /00142207/ [Concomitant]
     Indication: CONSTIPATION
     Route: 048
  10. THEO-DUR [Concomitant]
     Indication: ASTHMA
     Route: 048

REACTIONS (2)
  - CARDIAC FAILURE [None]
  - FEMORAL NECK FRACTURE [None]
